FAERS Safety Report 7801323-6 (Version None)
Quarter: 2011Q4

REPORT INFORMATION
  Report Type: 
  Country: None (occurrence: None)
  Receive Date: 20111006
  Receipt Date: 20111006
  Transmission Date: 20120403
  Serious: Yes (Hospitalization)
  Sender: FDA-Public Use
  Company Number: None

PATIENT
  Age: 58 Year
  Sex: Female
  Weight: 74.5 kg

DRUGS (10)
  1. KEFLEX [Suspect]
     Indication: EXOPHTHALMOS
     Dosage: 250MG Q6HR PO RECENT
     Route: 048
  2. KEFLEX [Suspect]
     Indication: POSTOPERATIVE CARE
     Dosage: 250MG Q6HR PO RECENT
     Route: 048
  3. ZOCOR [Concomitant]
  4. LANTUS [Concomitant]
  5. LORAZEPAM [Concomitant]
  6. LEVOTHYROXINE SODIUM [Concomitant]
  7. WELLBUTRIN XL [Concomitant]
  8. LAMICTAL [Concomitant]
  9. HUMALOG [Concomitant]
  10. ASPIRIN [Concomitant]

REACTIONS (2)
  - DYSPNOEA [None]
  - ANAPHYLACTIC REACTION [None]
